FAERS Safety Report 18623946 (Version 2)
Quarter: 2020Q4

REPORT INFORMATION
  Report Type: Other
  Country: US (occurrence: US)
  Receive Date: 20201216
  Receipt Date: 20201218
  Transmission Date: 20210114
  Serious: Yes (Other)
  Sender: FDA-Public Use
  Company Number: US-ROCHE-2734247

PATIENT
  Sex: Female

DRUGS (2)
  1. OCREVUS [Suspect]
     Active Substance: OCRELIZUMAB
     Route: 042
  2. OCREVUS [Suspect]
     Active Substance: OCRELIZUMAB
     Indication: RELAPSING-REMITTING MULTIPLE SCLEROSIS
     Dosage: PRESCRIBED WITH INFUSE 300 MG, REPEAT IN 2 WEEKS?DATE OF TREATMENT: 28/AUG/2019, 13/FEB/2020, 20/AUG
     Route: 042
     Dates: start: 20190814

REACTIONS (1)
  - Herpes zoster [Recovering/Resolving]
